FAERS Safety Report 4778313-3 (Version None)
Quarter: 2005Q3

REPORT INFORMATION
  Report Type: 
  Country: None (occurrence: None)
  Receive Date: 20050926
  Receipt Date: 20050224
  Transmission Date: 20060218
  Serious: Yes (Hospitalization)
  Sender: FDA-Public Use
  Company Number: US-BRISTOL-MYERS SQUIBB COMPANY-12874756

PATIENT
  Sex: Female
  Weight: 63 kg

DRUGS (2)
  1. STADOL [Suspect]
     Indication: HEADACHE
     Route: 042
     Dates: start: 20050220
  2. LORTAB [Concomitant]
     Indication: BACK PAIN

REACTIONS (6)
  - BLOOD PRESSURE INCREASED [None]
  - BURNING SENSATION [None]
  - DYSPNOEA [None]
  - FLUSHING [None]
  - HYPERHIDROSIS [None]
  - NAUSEA [None]
